FAERS Safety Report 22606896 (Version 1)
Quarter: 2023Q2

REPORT INFORMATION
  Report Type: Spontaneous
  Country: CN (occurrence: CN)
  Receive Date: 20230615
  Receipt Date: 20230615
  Transmission Date: 20230722
  Serious: Yes (Other)
  Sender: FDA-Public Use
  Company Number: CN-PFIZER INC-PV202300103374

PATIENT
  Age: 8 Year
  Sex: Male
  Weight: 28 kg

DRUGS (4)
  1. CYTARABINE [Suspect]
     Active Substance: CYTARABINE
     Indication: Lymphocytic leukaemia
     Dosage: 2100 MG, 2X/DAY
     Route: 041
     Dates: start: 20230505, end: 20230506
  2. FAMOTIDINE [Suspect]
     Active Substance: FAMOTIDINE
     Indication: Stress ulcer
     Dosage: 10 MG, 2X/DAY
     Route: 041
     Dates: start: 20230504, end: 20230512
  3. DEXTROSE [Concomitant]
     Active Substance: DEXTROSE\DEXTROSE MONOHYDRATE
     Dosage: 100 ML, 2X/DAY
     Dates: start: 20230504, end: 20230512
  4. DEXTROSE [Concomitant]
     Active Substance: DEXTROSE\DEXTROSE MONOHYDRATE
     Dosage: 250 ML
     Dates: start: 20230505, end: 20230506

REACTIONS (1)
  - Drug-induced liver injury [Recovering/Resolving]

NARRATIVE: CASE EVENT DATE: 20230511
